FAERS Safety Report 6821309-8 (Version None)
Quarter: 2010Q3

REPORT INFORMATION
  Report Type: 
  Country: None (occurrence: None)
  Receive Date: 20100707
  Receipt Date: 20080701
  Transmission Date: 20110219
  Serious: No
  Sender: FDA-Public Use
  Company Number: US-PFIZER INC-2008044469

PATIENT
  Sex: Female

DRUGS (2)
  1. ZOLOFT [Suspect]
     Indication: OBSESSIVE-COMPULSIVE DISORDER
     Dates: start: 20080501
  2. RESTORIL [Concomitant]

REACTIONS (11)
  - AGITATION [None]
  - CONSTIPATION [None]
  - DECREASED APPETITE [None]
  - DISTURBANCE IN ATTENTION [None]
  - FEELING ABNORMAL [None]
  - GASTROINTESTINAL SOUNDS ABNORMAL [None]
  - NAUSEA [None]
  - NERVOUSNESS [None]
  - PALPITATIONS [None]
  - PRESYNCOPE [None]
  - READING DISORDER [None]
